FAERS Safety Report 19833790 (Version 1)
Quarter: 2021Q3

REPORT INFORMATION
  Report Type: Report from Study
  Country: US (occurrence: US)
  Receive Date: 20210915
  Receipt Date: 20210915
  Transmission Date: 20211014
  Serious: Yes (Other)
  Sender: FDA-Public Use
  Company Number: NVSC2021US205461

PATIENT
  Age: 53 Year
  Sex: Male

DRUGS (1)
  1. COSENTYX [Suspect]
     Active Substance: SECUKINUMAB
     Indication: ANKYLOSING SPONDYLITIS
     Dosage: 150 MG, QW(FOR 5 WEEKS AND THEN Q 4 WEEKS)
     Route: 058

REACTIONS (2)
  - Spinal cord herniation [Unknown]
  - Back injury [Unknown]

NARRATIVE: CASE EVENT DATE: 20210823
